FAERS Safety Report 8041707-7 (Version None)
Quarter: 2012Q1

REPORT INFORMATION
  Report Type: 
  Country: None (occurrence: None)
  Receive Date: 20120112
  Receipt Date: 20111229
  Transmission Date: 20120608
  Serious: Yes (Other)
  Sender: FDA-Public Use
  Company Number: KP-RANBAXY-2011R1-50781

PATIENT
  Age: 40 Year
  Sex: Female

DRUGS (3)
  1. GINEXIN [Concomitant]
     Indication: OEDEMA PERIPHERAL
     Dosage: UNK
     Route: 065
  2. SPIRONOLACTONE [Concomitant]
     Indication: OEDEMA PERIPHERAL
     Dosage: UNK
     Route: 065
  3. HYDROCHLOROTHIAZIDE [Suspect]
     Indication: OEDEMA PERIPHERAL
     Dosage: UNK
     Route: 065

REACTIONS (3)
  - CHOROIDAL EFFUSION [None]
  - MYOPIA [None]
  - CONJUNCTIVAL OEDEMA [None]
